FAERS Safety Report 14177835 (Version 2)
Quarter: 2017Q4

REPORT INFORMATION
  Report Type: Spontaneous
  Country: US (occurrence: US)
  Receive Date: 20171110
  Receipt Date: 20171204
  Transmission Date: 20180321
  Serious: No
  Sender: FDA-Public Use
  Company Number: US-BAYER-2017-215492

PATIENT
  Age: 57 Year
  Sex: Male
  Weight: 90.7 kg

DRUGS (2)
  1. CLARITIN [Suspect]
     Active Substance: LORATADINE
     Indication: NASOPHARYNGITIS
  2. CLARITIN [Suspect]
     Active Substance: LORATADINE
     Indication: HYPERSENSITIVITY
     Dosage: UNK FIRST USE
     Route: 048

REACTIONS (1)
  - Allergic reaction to excipient [Unknown]

NARRATIVE: CASE EVENT DATE: 20171107
